FAERS Safety Report 4653394-6 (Version None)
Quarter: 2005Q2

REPORT INFORMATION
  Report Type: 
  Country: None (occurrence: None)
  Receive Date: 20050505
  Receipt Date: 20040305
  Transmission Date: 20051028
  Serious: Yes (Other)
  Sender: FDA-Public Use
  Company Number: US-AMGEN-US067922

PATIENT
  Sex: Female
  Weight: 54.9 kg

DRUGS (9)
  1. ARANESP [Suspect]
     Indication: ANAEMIA
     Route: 058
     Dates: start: 20031121, end: 20031205
  2. ACYCLOVIR [Concomitant]
     Dates: start: 20030805
  3. AMOXICILLIN [Concomitant]
     Dates: start: 20040121, end: 20040203
  4. ALBUTEROL [Concomitant]
     Dates: start: 20040102
  5. MOXIFLOXACIN HCL [Concomitant]
     Dates: start: 20040102, end: 20040118
  6. FLUOXETINE [Concomitant]
  7. CYCLOPHOSPHAMIDE [Concomitant]
     Dates: start: 20031023, end: 20031114
  8. CISPLATIN [Concomitant]
     Dates: start: 20031023, end: 20031114
  9. DOXORUBICIN HCL [Concomitant]
     Dates: start: 20031023, end: 20031114

REACTIONS (2)
  - APLASIA PURE RED CELL [None]
  - SERUM FERRITIN INCREASED [None]
